FAERS Safety Report 6891957-8 (Version None)
Quarter: 2010Q3

REPORT INFORMATION
  Report Type: 
  Country: None (occurrence: None)
  Receive Date: 20100731
  Receipt Date: 20071211
  Transmission Date: 20110219
  Serious: No
  Sender: FDA-Public Use
  Company Number: US-PFIZER INC-2007074694

PATIENT
  Sex: Male
  Weight: 105.23 kg

DRUGS (3)
  1. CAVERJECT [Suspect]
     Indication: ERECTILE DYSFUNCTION
     Dates: start: 20070328
  2. NORVASC [Concomitant]
  3. VYTORIN [Concomitant]

REACTIONS (1)
  - DRUG INEFFECTIVE [None]
